FAERS Safety Report 20745642 (Version 1)
Quarter: 2022Q2

REPORT INFORMATION
  Report Type: Spontaneous
  Country: US (occurrence: None)
  Receive Date: 20220424
  Receipt Date: 20220424
  Transmission Date: 20220720
  Serious: Yes (Disabling, Other)
  Sender: FDA-Public Use
  Company Number: None

PATIENT
  Age: 3 Year
  Sex: Female
  Weight: 10.8 kg

DRUGS (5)
  1. BANANA BOAT KIDS SPORT SUNSCREEN ROLL-ON UVA/UVB BROAD SPECTRUM SPF 60 [Suspect]
     Active Substance: AVOBENZONE\HOMOSALATE\OCTISALATE\OCTOCRYLENE
     Indication: Prophylaxis against solar radiation
     Dosage: FREQUENCY : AS NEEDED;?
     Route: 061
     Dates: start: 20220423, end: 20220423
  2. Ivig-igg supplementation [Concomitant]
  3. entivyio (vedolizumab) [Concomitant]
  4. BENADRYL [Concomitant]
     Active Substance: DIPHENHYDRAMINE HYDROCHLORIDE
  5. EPIPEN [Concomitant]
     Active Substance: EPINEPHRINE

REACTIONS (5)
  - Dermatitis contact [None]
  - Application site rash [None]
  - Swelling face [None]
  - Rash [None]
  - Product formulation issue [None]

NARRATIVE: CASE EVENT DATE: 20220423
